FAERS Safety Report 6618062-X (Version None)
Quarter: 2010Q1

REPORT INFORMATION
  Report Type: 
  Country: None (occurrence: None)
  Receive Date: 20100308
  Receipt Date: 20100304
  Transmission Date: 20100710
  Serious: Yes (Hospitalization)
  Sender: FDA-Public Use
  Company Number: US-B.I. PHARMACEUTICALS,INC./RIDGEFIELD-2010-BP-00368BP

PATIENT
  Sex: Male
  Weight: 74.84 kg

DRUGS (3)
  1. AGGRENOX [Suspect]
     Indication: CEREBROVASCULAR ACCIDENT
     Dosage: 2 RT
     Route: 048
     Dates: start: 20080101
  2. AGGRENOX [Suspect]
     Indication: TRANSIENT ISCHAEMIC ATTACK
  3. VIAGRA [Concomitant]

REACTIONS (2)
  - PLATELET COUNT DECREASED [None]
  - PROSTATIC DISORDER [None]
